FAERS Safety Report 5208300-2 (Version None)
Quarter: 2007Q1

REPORT INFORMATION
  Report Type: 
  Country: None (occurrence: None)
  Receive Date: 20070110
  Receipt Date: 20070110
  Transmission Date: 20070707
  Serious: Yes (Life-Threatening)
  Sender: FDA-Public Use
  Company Number: None

PATIENT
  Age: 61 Year
  Sex: Female
  Weight: 62 kg

DRUGS (1)
  1. TAXOTERE [Suspect]
     Indication: NON-SMALL CELL LUNG CANCER
     Dosage: 49 MG EVERY 7 DAYS IV
     Route: 042
     Dates: start: 20061101, end: 20061130

REACTIONS (2)
  - INFUSION RELATED REACTION [None]
  - OXYGEN SATURATION DECREASED [None]
